FAERS Safety Report 7092403-4 (Version None)
Quarter: 2010Q4

REPORT INFORMATION
  Report Type: 
  Country: None (occurrence: None)
  Receive Date: 20101110
  Receipt Date: 20101105
  Transmission Date: 20110411
  Serious: Yes (Other)
  Sender: FDA-Public Use
  Company Number: FR-BIOGENIDEC-2010BI038788

PATIENT
  Age: 38 Year
  Sex: Female
  Weight: 57 kg

DRUGS (3)
  1. AVONEX [Suspect]
     Indication: MULTIPLE SCLEROSIS
     Route: 030
     Dates: start: 20000101, end: 20031001
  2. AVONEX [Suspect]
     Route: 030
     Dates: start: 20031001
  3. OMEXEL [Concomitant]

REACTIONS (2)
  - LANGERHANS' CELL HISTIOCYTOSIS [None]
  - METABOLIC DISORDER [None]
